FAERS Safety Report 19742706 (Version 1)
Quarter: 2021Q3

REPORT INFORMATION
  Report Type: Report from Study
  Country: US (occurrence: US)
  Receive Date: 20210825
  Receipt Date: 20210825
  Transmission Date: 20211014
  Serious: No
  Sender: FDA-Public Use
  Company Number: US-BIOVITRUM-2021US2918

PATIENT
  Age: 32 Year
  Sex: Female

DRUGS (1)
  1. KINERET [Suspect]
     Active Substance: ANAKINRA
     Indication: AUTOINFLAMMATORY DISEASE
     Dosage: 100MG/0.67ML
     Route: 058
     Dates: start: 20190408

REACTIONS (7)
  - Condition aggravated [Unknown]
  - Bronchitis [Unknown]
  - Needle issue [Unknown]
  - Intentional product misuse [Unknown]
  - Off label use [Unknown]
  - Autoinflammatory disease [Unknown]
  - Product dose omission issue [Unknown]

NARRATIVE: CASE EVENT DATE: 20190408
